FAERS Safety Report 23076194 (Version 1)
Quarter: 2023Q4

REPORT INFORMATION
  Report Type: Report from Study
  Country: CA (occurrence: CA)
  Receive Date: 20231017
  Receipt Date: 20231017
  Transmission Date: 20240109
  Serious: Yes (Other)
  Sender: FDA-Public Use
  Company Number: CA-ABBVIE-4157775

PATIENT
  Sex: Female

DRUGS (1)
  1. HUMIRA [Suspect]
     Active Substance: ADALIMUMAB
     Indication: Psoriatic arthropathy
     Dosage: FORM STRENGTH: 40 MG
     Route: 058
     Dates: start: 20180821

REACTIONS (5)
  - Cardiac murmur [Unknown]
  - Arthralgia [Unknown]
  - Knee deformity [Unknown]
  - Osteoarthritis [Unknown]
  - Walking aid user [Unknown]
